FAERS Safety Report 9185768 (Version 1)
Quarter: 2013Q1

REPORT INFORMATION
  Report Type: Spontaneous
  Country: GB (occurrence: GB)
  Receive Date: 20130325
  Receipt Date: 20130325
  Transmission Date: 20140127
  Serious: Yes (Hospitalization)
  Sender: FDA-Public Use
  Company Number: GB-AMGEN-GBRSP2013018906

PATIENT
  Age: 50 Year
  Sex: Male

DRUGS (3)
  1. XGEVA [Suspect]
     Indication: METASTASES TO BONE
     Dosage: 120 MG, UNK
     Route: 058
  2. ADCAL                              /00056901/ [Concomitant]
  3. CALCICHEW [Concomitant]

REACTIONS (5)
  - Cardiac failure [Unknown]
  - Joint swelling [Unknown]
  - Muscular weakness [Unknown]
  - Dyspnoea [Unknown]
  - Blood calcium decreased [Recovered/Resolved]
